FAERS Safety Report 12207104 (Version 1)
Quarter: 2016Q1

REPORT INFORMATION
  Report Type: Spontaneous
  Country: US (occurrence: None)
  Receive Date: 20160323
  Receipt Date: 20160323
  Transmission Date: 20160526
  Serious: No
  Sender: FDA-Public Use
  Company Number: None

PATIENT
  Age: 62 Year
  Sex: Male
  Weight: 95.26 kg

DRUGS (30)
  1. XANAX [Concomitant]
     Active Substance: ALPRAZOLAM
  2. ALBUTEROL. [Concomitant]
     Active Substance: ALBUTEROL
  3. SYMBICORT [Concomitant]
     Active Substance: BUDESONIDE\FORMOTEROL FUMARATE DIHYDRATE
  4. BERBERIS AQUIFOLIUM [Concomitant]
  5. ULTRAM [Concomitant]
     Active Substance: TRAMADOL HYDROCHLORIDE
  6. VIT. B12 [Concomitant]
  7. PRAVACHOL [Concomitant]
     Active Substance: PRAVASTATIN SODIUM
  8. AZELASTINE NASAL [Concomitant]
  9. PLAVIX [Concomitant]
     Active Substance: CLOPIDOGREL BISULFATE
  10. PROTONIX [Concomitant]
     Active Substance: PANTOPRAZOLE SODIUM
  11. CO-Q10 [Concomitant]
  12. CLOBETASOL [Concomitant]
     Active Substance: CLOBETASOL
  13. FLONASE [Concomitant]
     Active Substance: FLUTICASONE PROPIONATE
  14. ENTRESTO [Suspect]
     Active Substance: SACUBITRIL\VALSARTAN
     Indication: CARDIAC FAILURE
     Route: 048
     Dates: start: 20160222, end: 20160316
  15. ASA 81MG [Concomitant]
  16. LUTEIN [Concomitant]
     Active Substance: LUTEIN
  17. RESTFUL LEGS [Concomitant]
  18. FLOMAX [Concomitant]
     Active Substance: TAMSULOSIN HYDROCHLORIDE
  19. BISOPROLOL [Concomitant]
     Active Substance: BISOPROLOL
  20. INSPRA [Concomitant]
     Active Substance: EPLERENONE
  21. PRESSER VISION EYE VITAMIN [Concomitant]
  22. SYSTANE ULTRA [Concomitant]
     Active Substance: POLYETHYLENE GLYCOL 400\PROPYLENE GLYCOL
  23. FISH OIL [Concomitant]
     Active Substance: FISH OIL
  24. PREDNISONE. [Concomitant]
     Active Substance: PREDNISONE
  25. TORSEMIDE. [Concomitant]
     Active Substance: TORSEMIDE
  26. NORCO [Concomitant]
     Active Substance: ACETAMINOPHEN\HYDROCODONE BITARTRATE
  27. MELATONIN [Concomitant]
     Active Substance: MELATONIN
  28. MVI WITH MINERALS [Concomitant]
  29. TUDORZA PRESSAIR [Concomitant]
     Active Substance: ACLIDINIUM BROMIDE
  30. NITROSTAT [Concomitant]
     Active Substance: NITROGLYCERIN

REACTIONS (1)
  - Hypotension [None]

NARRATIVE: CASE EVENT DATE: 20160316
